FAERS Safety Report 21283035 (Version 1)
Quarter: 2022Q3

REPORT INFORMATION
  Report Type: Spontaneous
  Country: US (occurrence: US)
  Receive Date: 20220901
  Receipt Date: 20220901
  Transmission Date: 20221027
  Serious: Yes (Hospitalization)
  Sender: FDA-Public Use
  Company Number: US-NOVARTISPH-NVSC2022US194213

PATIENT
  Age: 40 Year
  Sex: Male

DRUGS (5)
  1. TACROLIMUS [Suspect]
     Active Substance: TACROLIMUS
     Indication: Renal and pancreas transplant
     Dosage: 11MG,  (6MG AM /5MG PM)
     Route: 065
  2. TACROLIMUS [Suspect]
     Active Substance: TACROLIMUS
     Dosage: 5MG, (3 MG AM /2 MG PM)
     Route: 065
  3. TACROLIMUS [Suspect]
     Active Substance: TACROLIMUS
     Dosage: 1 MG, BID
     Route: 065
  4. RITONAVIR [Concomitant]
     Active Substance: RITONAVIR
     Indication: Renal transplant
     Dosage: 150/100 MG
     Route: 065
  5. MYCOPHENOLATE SODIUM [Concomitant]
     Active Substance: MYCOPHENOLATE SODIUM
     Indication: Renal and pancreas transplant
     Dosage: 180 MG, BID
     Route: 065

REACTIONS (1)
  - Toxicity to various agents [Recovering/Resolving]
